FAERS Safety Report 8463027-9 (Version None)
Quarter: 2012Q2

REPORT INFORMATION
  Report Type: 
  Country: None (occurrence: None)
  Receive Date: 20120625
  Receipt Date: 20100413
  Transmission Date: 20120825
  Serious: Yes (Other)
  Sender: FDA-Public Use
  Company Number: US-ROCHE-699234

PATIENT
  Sex: Female
  Weight: 117.9 kg

DRUGS (9)
  1. BONIVA [Suspect]
     Indication: OSTEOPENIA
     Dosage: FREQUENCY:EVERY 3 MONTHLY
     Route: 042
  2. CALCIUM [Concomitant]
  3. TRICOR [Concomitant]
  4. IMITREX [Concomitant]
     Dosage: DRUG REPORTED AS IMITREX PLUS
  5. LIBRAX [Concomitant]
  6. RISPERIDONE [Concomitant]
     Dosage: DRUG REPORTED AS RESPERIDOL
  7. ZOCOR [Concomitant]
  8. DEPAKOTE [Concomitant]
  9. ADVAIR DISKUS 100/50 [Concomitant]

REACTIONS (3)
  - FALL [None]
  - WRIST FRACTURE [None]
  - UPPER LIMB FRACTURE [None]
